FAERS Safety Report 6341949-2 (Version None)
Quarter: 2009Q3

REPORT INFORMATION
  Report Type: 
  Country: None (occurrence: None)
  Receive Date: 20090904
  Receipt Date: 20090825
  Transmission Date: 20100115
  Serious: Yes (Hospitalization)
  Sender: FDA-Public Use
  Company Number: IL-AMGEN-QUU361868

PATIENT

DRUGS (4)
  1. NEULASTIM [Suspect]
     Indication: CHEMOTHERAPY
     Route: 058
  2. RITUXIMAB [Suspect]
  3. FLUDARABINE PHOSPHATE [Concomitant]
     Route: 042
  4. CYCLOPHOSPHAMIDE [Concomitant]
     Route: 042

REACTIONS (2)
  - DYSPNOEA [None]
  - PYREXIA [None]
